FAERS Safety Report 6511196-X (Version None)
Quarter: 2009Q4

REPORT INFORMATION
  Report Type: 
  Country: None (occurrence: None)
  Receive Date: 20091222
  Receipt Date: 20090225
  Transmission Date: 20100525
  Serious: No
  Sender: FDA-Public Use
  Company Number: US-ASTRAZENECA-2009UW05205

PATIENT
  Sex: Female
  Weight: 52.2 kg

DRUGS (6)
  1. CRESTOR [Suspect]
     Indication: BLOOD CHOLESTEROL INCREASED
     Route: 048
     Dates: start: 20090215
  2. PLAVIX [Concomitant]
  3. COZAAR [Concomitant]
  4. FLUOXETINE [Concomitant]
  5. DILTIAZEM [Concomitant]
  6. ASPIRIN [Concomitant]

REACTIONS (1)
  - FLUSHING [None]
